FAERS Safety Report 5149251-1 (Version None)
Quarter: 2006Q4

REPORT INFORMATION
  Report Type: 
  Country: None (occurrence: None)
  Receive Date: 20061113
  Receipt Date: 20050930
  Transmission Date: 20070319
  Serious: No
  Sender: FDA-Public Use
  Company Number: 419949

PATIENT
  Age: 57 Year
  Sex: Male

DRUGS (14)
  1. COREG [Suspect]
     Indication: DRUG USE FOR UNKNOWN INDICATION
     Route: 048
     Dates: start: 20050301
  2. NYSTATIN [Suspect]
     Indication: DRUG USE FOR UNKNOWN INDICATION
     Route: 065
     Dates: start: 20050701
  3. ALLOPURINOL [Concomitant]
  4. HYDRALAZINE HCL [Concomitant]
  5. MINOCYCLINE HCL [Concomitant]
  6. LIPITOR [Concomitant]
  7. LISINOPRIL [Concomitant]
  8. PLAVIX [Concomitant]
  9. SPIRONOLACTONE [Concomitant]
  10. ASPIRIN [Concomitant]
  11. OMEGA FISH OIL [Concomitant]
  12. RESTORIL [Concomitant]
  13. BIOTIN [Concomitant]
  14. VIAGRA [Concomitant]

REACTIONS (4)
  - ARTHRITIS [None]
  - ERYTHEMA NODOSUM [None]
  - PAIN IN EXTREMITY [None]
  - SKIN DISCOLOURATION [None]
